FAERS Safety Report 8784579 (Version 1)
Quarter: 2012Q4

REPORT INFORMATION
  Report Type: Spontaneous
  Country: US (occurrence: None)
  Receive Date: 20120907
  Receipt Date: 20120907
  Transmission Date: 20130627
  Serious: Yes (Death)
  Sender: FDA-Public Use
  Company Number: None

PATIENT
  Age: 64 Year
  Sex: Female
  Weight: 53.62 kg

DRUGS (1)
  1. ZELBORAF [Suspect]
     Route: 048
     Dates: start: 20120720, end: 201208

REACTIONS (2)
  - Skin exfoliation [None]
  - Thermal burn [None]
